FAERS Safety Report 17391420 (Version 1)
Quarter: 2020Q1

REPORT INFORMATION
  Report Type: Spontaneous
  Country: GB (occurrence: GB)
  Receive Date: 20200207
  Receipt Date: 20200207
  Transmission Date: 20200409
  Serious: Yes (Disabling, Other)
  Sender: FDA-Public Use
  Company Number: GB-MYLANLABS-2020M1013537

PATIENT
  Age: 63 Year
  Sex: Female
  Weight: 60.32 kg

DRUGS (3)
  1. EVACAL D3 [Concomitant]
  2. ZOLEDRONIC ACID [Suspect]
     Active Substance: ZOLEDRONIC ACID
     Indication: LUMBAR VERTEBRAL FRACTURE
     Dosage: 5 MILLIGRAM
     Route: 051
     Dates: start: 20181023
  3. GAVISCON ADVANCE                   /01340901/ [Concomitant]

REACTIONS (4)
  - Headache [Not Recovered/Not Resolved]
  - Joint stiffness [Not Recovered/Not Resolved]
  - Pain in extremity [Not Recovered/Not Resolved]
  - Inflammation [Not Recovered/Not Resolved]

NARRATIVE: CASE EVENT DATE: 20181023
